FAERS Safety Report 13420293 (Version 1)
Quarter: 2017Q2

REPORT INFORMATION
  Report Type: Spontaneous
  Country: US (occurrence: US)
  Receive Date: 20170407
  Receipt Date: 20170407
  Transmission Date: 20170830
  Serious: No
  Sender: FDA-Public Use
  Company Number: US-B.I. PHARMACEUTICALS,INC./RIDGEFIELD-2017-BI-019426

PATIENT
  Age: 60 Year
  Sex: Male
  Weight: 114 kg

DRUGS (5)
  1. JARDIANCE [Suspect]
     Active Substance: EMPAGLIFLOZIN
     Dosage: 1 TABLET 1 TIME DAILY;  FORM STRENGTH: 25 MG; FORMULATION: TABLET? ADMINISTRATION CORRECT? YES ?ACTI
     Route: 048
     Dates: start: 201609, end: 201703
  2. JARDIANCE [Suspect]
     Active Substance: EMPAGLIFLOZIN
     Dosage: 1 TABLET 1 TIME DAILY;  FORM STRENGTH: 10 MG; FORMULATION: TABLET? ADMINISTRATION CORRECT? YES ?ACTI
     Route: 048
     Dates: start: 20170401
  3. METFORNIN [Concomitant]
     Indication: DIABETES MELLITUS
     Dosage: 1 TABLET BID;  FORM STRENGTH: 1000 MG; FORMULATION: TABLET
     Route: 048
     Dates: start: 2016
  4. JARDIANCE [Suspect]
     Active Substance: EMPAGLIFLOZIN
     Indication: DIABETES MELLITUS
     Dosage: 1 TABLET 1 TIME DAILY;  FORM STRENGTH: 10 MG; FORMULATION: TABLET? ADMINISTRATION CORRECT? YES ?ACTI
     Route: 048
     Dates: start: 201603, end: 201609
  5. LISINOPRIL. [Concomitant]
     Active Substance: LISINOPRIL
     Indication: HYPERTENSION
     Dosage: 1 TABLET 1 TIME DAILY;  FORM STRENGTH: 40 MG; FORMULATION: TABLET
     Route: 048

REACTIONS (5)
  - Bronchitis [Not Recovered/Not Resolved]
  - Cough [Not Recovered/Not Resolved]
  - Abnormal loss of weight [Not Recovered/Not Resolved]
  - Muscle spasms [Not Recovered/Not Resolved]
  - Muscle spasms [Recovered/Resolved]

NARRATIVE: CASE EVENT DATE: 2016
